FAERS Safety Report 8219285-9 (Version None)
Quarter: 2012Q1

REPORT INFORMATION
  Report Type: 
  Country: None (occurrence: None)
  Receive Date: 20120307
  Receipt Date: 20100225
  Transmission Date: 20120608
  Serious: Yes (Hospitalization)
  Sender: FDA-Public Use
  Company Number: PHEH2010US02755

PATIENT
  Sex: Male

DRUGS (1)
  1. AFINITOR [Suspect]
     Dates: start: 20100108

REACTIONS (2)
  - PYREXIA [None]
  - PNEUMONITIS [None]
